FAERS Safety Report 18234828 (Version 2)
Quarter: 2020Q3

REPORT INFORMATION
  Report Type: Spontaneous
  Country: RU (occurrence: RU)
  Receive Date: 20200904
  Receipt Date: 20200921
  Transmission Date: 20201103
  Serious: Yes (Other)
  Sender: FDA-Public Use
  Company Number: RU-009507513-2008RUS014378

PATIENT
  Age: 27 Year
  Sex: Female

DRUGS (3)
  1. DIPROSPAN [Suspect]
     Active Substance: BETAMETHASONE DIPROPIONATE\BETAMETHASONE SODIUM PHOSPHATE
     Indication: DERMATITIS ATOPIC
     Dosage: 1 CUBE OF DIPROSPAN ONCE
  2. DIPROSPAN [Suspect]
     Active Substance: BETAMETHASONE DIPROPIONATE\BETAMETHASONE SODIUM PHOSPHATE
     Dosage: 1 CUBE OF DIPROSPAN
     Dates: start: 2020, end: 2020
  3. DIPROSPAN [Suspect]
     Active Substance: BETAMETHASONE DIPROPIONATE\BETAMETHASONE SODIUM PHOSPHATE
     Dosage: SECOND CUBE OF DIPROSPAN
     Dates: start: 2020

REACTIONS (6)
  - Pulmonary oedema [Recovered/Resolved]
  - Rebound atopic dermatitis [Unknown]
  - Weight increased [Not Recovered/Not Resolved]
  - Arthralgia [Recovering/Resolving]
  - Product use issue [Unknown]
  - Asphyxia [Recovered/Resolved]

NARRATIVE: CASE EVENT DATE: 2020
